FAERS Safety Report 5858251-5 (Version None)
Quarter: 2008Q3

REPORT INFORMATION
  Report Type: 
  Country: None (occurrence: None)
  Receive Date: 20080826
  Receipt Date: 20080819
  Transmission Date: 20090109
  Serious: Yes (Hospitalization)
  Sender: FDA-Public Use
  Company Number: A0743322A

PATIENT
  Sex: Female

DRUGS (3)
  1. WELLBUTRIN SR [Suspect]
     Indication: DEPRESSION
     Dosage: 150MG TWICE PER DAY
     Route: 048
     Dates: start: 20050301
  2. SEROQUEL [Concomitant]
  3. ALPRAZOLAM [Concomitant]

REACTIONS (1)
  - SMALL INTESTINAL RESECTION [None]
